FAERS Safety Report 25511219 (Version 1)
Quarter: 2025Q3

REPORT INFORMATION
  Report Type: Spontaneous
  Country: GB (occurrence: GB)
  Receive Date: 20250703
  Receipt Date: 20250703
  Transmission Date: 20251020
  Serious: Yes (Other)
  Sender: MERCK SHARP & DOHME LLC
  Company Number: GB-009507513-2299953

PATIENT
  Age: 67 Year
  Sex: Male

DRUGS (1)
  1. PEMBROLIZUMAB [Suspect]
     Active Substance: PEMBROLIZUMAB
     Indication: Malignant melanoma stage II

REACTIONS (5)
  - Adrenal insufficiency [Unknown]
  - Hypophysitis [Unknown]
  - Lichen sclerosus [Unknown]
  - Retinal vein occlusion [Unknown]
  - Hypothyroidism [Unknown]
